FAERS Safety Report 11793674 (Version 1)
Quarter: 2015Q4

REPORT INFORMATION
  Report Type: Report from Study
  Country: US (occurrence: US)
  Receive Date: 20151202
  Receipt Date: 20151202
  Transmission Date: 20160305
  Serious: Yes (Hospitalization)
  Sender: FDA-Public Use
  Company Number: US-BIOGENIDEC-2015BI157858

PATIENT
  Age: 59 Year
  Sex: Male

DRUGS (19)
  1. COLACE [Concomitant]
     Active Substance: DOCUSATE SODIUM
  2. LOTENSIN [Concomitant]
     Active Substance: BENAZEPRIL HYDROCHLORIDE
  3. MIRALAX [Concomitant]
     Active Substance: POLYETHYLENE GLYCOL 3350
  4. DOCUSATE [Concomitant]
     Active Substance: DOCUSATE
  5. VENFLAXINE [Concomitant]
  6. TECFIDERA [Suspect]
     Active Substance: DIMETHYL FUMARATE
     Indication: MULTIPLE SCLEROSIS
     Route: 048
     Dates: start: 201407
  7. SEROQUEL [Concomitant]
     Active Substance: QUETIAPINE FUMARATE
  8. NORVASC [Concomitant]
     Active Substance: AMLODIPINE BESYLATE
  9. TEMAZEPAM. [Concomitant]
     Active Substance: TEMAZEPAM
  10. LINZESS [Concomitant]
     Active Substance: LINACLOTIDE
  11. FLOMAX [Concomitant]
     Active Substance: TAMSULOSIN HYDROCHLORIDE
  12. GABAPENTIN. [Concomitant]
     Active Substance: GABAPENTIN
  13. ASPRIN [Concomitant]
     Active Substance: ASPIRIN
  14. RESTORIL [Concomitant]
     Active Substance: TEMAZEPAM
  15. PROVENTIL [Concomitant]
     Active Substance: ALBUTEROL
  16. BENAZEPRIL [Concomitant]
     Active Substance: BENAZEPRIL HYDROCHLORIDE
  17. ALBUTEROL. [Concomitant]
     Active Substance: ALBUTEROL
  18. PRILOSEC [Concomitant]
     Active Substance: OMEPRAZOLE MAGNESIUM
  19. ADVAIR HFA [Concomitant]
     Active Substance: FLUTICASONE PROPIONATE\SALMETEROL XINAFOATE

REACTIONS (2)
  - Ileus [Unknown]
  - Colitis [Unknown]
